FAERS Safety Report 8277492-3 (Version None)
Quarter: 2012Q2

REPORT INFORMATION
  Report Type: 
  Country: None (occurrence: None)
  Receive Date: 20120412
  Receipt Date: 20120410
  Transmission Date: 20120825
  Serious: Yes (Disabling)
  Sender: FDA-Public Use
  Company Number: PHHY2011DK77333

PATIENT
  Sex: Male

DRUGS (6)
  1. METHOTREXATE [Suspect]
     Dosage: 7.5 MG, UNK
     Dates: start: 20060101, end: 20080603
  2. HUMIRA [Suspect]
     Dosage: 40 MG EVERY THREE WEEK
  3. REMICADE [Suspect]
     Indication: ANKYLOSING SPONDYLITIS
     Route: 065
     Dates: start: 20051125
  4. METHOTREXATE [Suspect]
     Indication: URTICARIA
     Dosage: 25 MG, UNK
     Route: 048
     Dates: start: 20050301
  5. HUMIRA [Suspect]
     Indication: ANKYLOSING SPONDYLITIS
     Dosage: 40 MG, EVERY TWO WEEK
     Dates: start: 20100909, end: 20110601
  6. REMICADE [Suspect]
     Dosage: 420 MG EVERY 6 WEEKS
     Route: 065
     Dates: end: 20100311

REACTIONS (2)
  - VARICES OESOPHAGEAL [None]
  - HEPATIC CIRRHOSIS [None]
